FAERS Safety Report 22102554 (Version 1)
Quarter: 2023Q1

REPORT INFORMATION
  Report Type: Spontaneous
  Country: CN (occurrence: None)
  Receive Date: 20230316
  Receipt Date: 20230316
  Transmission Date: 20230417
  Serious: Yes (Hospitalization)
  Sender: FDA-Public Use
  Company Number: 2023A057932

PATIENT
  Age: 56 Year
  Sex: Male

DRUGS (4)
  1. OSIMERTINIB MESYLATE [Suspect]
     Active Substance: OSIMERTINIB MESYLATE
     Indication: Lung neoplasm malignant
     Route: 048
     Dates: start: 20230126, end: 20230224
  2. OSIMERTINIB MESYLATE [Suspect]
     Active Substance: OSIMERTINIB MESYLATE
     Indication: Chemotherapy
     Route: 048
     Dates: start: 20230126, end: 20230224
  3. HUA CHAN SU [Concomitant]
     Indication: Chemotherapy
     Route: 048
     Dates: start: 20230126, end: 20230224
  4. CAMRELIZUMAB [Concomitant]
     Active Substance: CAMRELIZUMAB
     Indication: Chemotherapy
     Route: 041
     Dates: start: 20230126, end: 20230224

REACTIONS (1)
  - Drug-induced liver injury [Recovering/Resolving]

NARRATIVE: CASE EVENT DATE: 20230224
